FAERS Safety Report 9563202 (Version 2)
Quarter: 2013Q3

REPORT INFORMATION
  Report Type: Spontaneous
  Country: US (occurrence: US)
  Receive Date: 20130927
  Receipt Date: 20130927
  Transmission Date: 20140515
  Serious: No
  Sender: FDA-Public Use
  Company Number: US-BRISTOL-MYERS SQUIBB COMPANY-18983361

PATIENT
  Age: 80 Year
  Sex: Female
  Weight: 88.89 kg

DRUGS (9)
  1. ONGLYZA TABS 2.5 MG [Suspect]
     Indication: TYPE 2 DIABETES MELLITUS
     Dates: start: 20130424
  2. SPIRONOLACTONE [Concomitant]
  3. CARVEDILOL [Concomitant]
  4. GLIMEPIRIDE [Concomitant]
  5. ATORVASTATIN [Concomitant]
  6. AMLODIPINE [Concomitant]
  7. LOSARTAN [Concomitant]
  8. CITALOPRAM [Concomitant]
  9. INDAPAMIDE [Concomitant]

REACTIONS (4)
  - Depression [Recovered/Resolved]
  - Hypoaesthesia [Recovered/Resolved]
  - Pruritus [Not Recovered/Not Resolved]
  - Blood glucose decreased [Recovered/Resolved]
